FAERS Safety Report 6739732-9 (Version None)
Quarter: 2010Q2

REPORT INFORMATION
  Report Type: 
  Country: None (occurrence: None)
  Receive Date: 20100525
  Receipt Date: 20100518
  Transmission Date: 20101027
  Serious: Yes (Other)
  Sender: FDA-Public Use
  Company Number: US-BAYER-201022853NA

PATIENT
  Age: 65 Year
  Sex: Female

DRUGS (2)
  1. ULTRAVIST 370 [Suspect]
     Indication: COMPUTERISED TOMOGRAM HEAD
     Dosage: TOTAL DAILY DOSE: 85 ML  UNIT DOSE: 100 ML
     Route: 042
     Dates: start: 20100518, end: 20100518
  2. GASTROGRAFIN [Concomitant]
     Dates: start: 20100518, end: 20100518

REACTIONS (1)
  - PHARYNGEAL OEDEMA [None]
